FAERS Safety Report 12832422 (Version 1)
Quarter: 2016Q4

REPORT INFORMATION
  Report Type: Spontaneous
  Country: US (occurrence: US)
  Receive Date: 20161010
  Receipt Date: 20161010
  Transmission Date: 20170207
  Serious: No
  Sender: FDA-Public Use
  Company Number: US-JAZZ-2016-US-013318

PATIENT
  Age: 51 Year
  Sex: Female

DRUGS (26)
  1. BACLOFEN. [Concomitant]
     Active Substance: BACLOFEN
  2. NALTREXONE HCL [Concomitant]
     Active Substance: NALTREXONE HYDROCHLORIDE
  3. NUVIGIL [Concomitant]
     Active Substance: ARMODAFINIL
  4. PRAMIPEXOLE. [Concomitant]
     Active Substance: PRAMIPEXOLE
  5. PROPRANOLOL [Concomitant]
     Active Substance: PROPRANOLOL\PROPRANOLOL HYDROCHLORIDE
  6. XYREM [Suspect]
     Active Substance: SODIUM OXYBATE
     Indication: CATAPLEXY
     Dosage: 3 G, BID
     Route: 048
     Dates: start: 201607
  7. CATAFLAM [Concomitant]
     Active Substance: DICLOFENAC POTASSIUM
  8. COMPAZINE [Concomitant]
     Active Substance: PROCHLORPERAZINE MALEATE
  9. VITAMIN D3 [Concomitant]
     Active Substance: CHOLECALCIFEROL
  10. XYREM [Suspect]
     Active Substance: SODIUM OXYBATE
     Indication: NARCOLEPSY
     Dosage: 2.25 G, BID
     Route: 048
     Dates: start: 20160703, end: 201607
  11. CAMBIA [Concomitant]
     Active Substance: DICLOFENAC POTASSIUM
  12. HYDROCORTISONE. [Concomitant]
     Active Substance: HYDROCORTISONE
  13. BIOTIN [Concomitant]
     Active Substance: BIOTIN
  14. LYSINE [Concomitant]
     Active Substance: LYSINE
  15. MULTIVITAMIN [Concomitant]
     Active Substance: VITAMINS
  16. RELPAX [Concomitant]
     Active Substance: ELETRIPTAN HYDROBROMIDE
  17. ARMOUR THYROID [Concomitant]
     Active Substance: THYROID, PORCINE
  18. CYMBALTA [Concomitant]
     Active Substance: DULOXETINE HYDROCHLORIDE
  19. ZONISAMIDE. [Concomitant]
     Active Substance: ZONISAMIDE
  20. ESTRADIOL. [Concomitant]
     Active Substance: ESTRADIOL
  21. MELATONIN [Concomitant]
     Active Substance: MELATONIN
  22. NAPROXEN SODIUM. [Concomitant]
     Active Substance: NAPROXEN SODIUM
  23. PANTOPRAZOLE [Concomitant]
     Active Substance: PANTOPRAZOLE SODIUM
  24. PROGESTERONE. [Concomitant]
     Active Substance: PROGESTERONE
  25. VYVANSE [Concomitant]
     Active Substance: LISDEXAMFETAMINE DIMESYLATE
  26. XELJANZ [Concomitant]
     Active Substance: TOFACITINIB CITRATE

REACTIONS (1)
  - Restlessness [Unknown]

NARRATIVE: CASE EVENT DATE: 201607
